FAERS Safety Report 11999228 (Version 1)
Quarter: 2016Q1

REPORT INFORMATION
  Report Type: Spontaneous
  Country: US (occurrence: US)
  Receive Date: 20160204
  Receipt Date: 20160204
  Transmission Date: 20160526
  Serious: Yes (Other)
  Sender: FDA-Public Use
  Company Number: US-BEH-2016058250

PATIENT
  Age: 55 Year
  Sex: Male
  Weight: 95 kg

DRUGS (30)
  1. AMOXICILLIN. [Concomitant]
     Active Substance: AMOXICILLIN
  2. DIPHENHYDRAMINE. [Concomitant]
     Active Substance: DIPHENHYDRAMINE
  3. SODIUM CHLORIDE. [Concomitant]
     Active Substance: SODIUM CHLORIDE
  4. CLARITIN [Concomitant]
     Active Substance: LORATADINE
  5. DALIRESP [Concomitant]
     Active Substance: ROFLUMILAST
  6. ALBUTEROL. [Concomitant]
     Active Substance: ALBUTEROL
  7. MULTIVITAMINS [Concomitant]
     Active Substance: VITAMINS
  8. QVAR [Concomitant]
     Active Substance: BECLOMETHASONE DIPROPIONATE
  9. OMNARIS [Concomitant]
     Active Substance: CICLESONIDE
  10. ZEMAIRA [Suspect]
     Active Substance: .ALPHA.1-PROTEINASE INHIBITOR HUMAN
     Indication: EMPHYSEMA
     Route: 042
     Dates: start: 20071210
  11. NASONEX [Concomitant]
     Active Substance: MOMETASONE FUROATE
  12. VENTOLIN [Concomitant]
     Active Substance: ALBUTEROL SULFATE
  13. ALLOPURINOL. [Concomitant]
     Active Substance: ALLOPURINOL
  14. FLONASE [Concomitant]
     Active Substance: FLUTICASONE PROPIONATE
  15. MUPIROCIN. [Concomitant]
     Active Substance: MUPIROCIN
  16. LIDOCAINE. [Concomitant]
     Active Substance: LIDOCAINE
  17. ADDERALL [Concomitant]
     Active Substance: AMPHETAMINE ASPARTATE\AMPHETAMINE SULFATE\DEXTROAMPHETAMINE SACCHARATE\DEXTROAMPHETAMINE SULFATE
  18. MUCINEX [Concomitant]
     Active Substance: GUAIFENESIN
  19. METHYLPHENIDATE. [Concomitant]
     Active Substance: METHYLPHENIDATE
  20. ZEMAIRA [Suspect]
     Active Substance: .ALPHA.1-PROTEINASE INHIBITOR HUMAN
     Indication: ALPHA-1 ANTI-TRYPSIN DEFICIENCY
     Route: 042
     Dates: start: 20071210
  21. VITAMIN B [Concomitant]
     Active Substance: VITAMIN B
  22. VITAMIN D [Concomitant]
     Active Substance: CHOLECALCIFEROL
  23. FISH OIL [Concomitant]
     Active Substance: FISH OIL
  24. BIOTIN [Concomitant]
     Active Substance: BIOTIN
  25. HEPARIN [Concomitant]
     Active Substance: HEPARIN SODIUM
  26. EPIPEN [Concomitant]
     Active Substance: EPINEPHRINE
  27. CODEINE [Concomitant]
     Active Substance: CODEINE
  28. IPRATROPIUM [Concomitant]
     Active Substance: IPRATROPIUM
  29. LEXAPRO [Concomitant]
     Active Substance: ESCITALOPRAM OXALATE
  30. PROAIR HFA [Concomitant]
     Active Substance: ALBUTEROL SULFATE

REACTIONS (2)
  - Sinusitis [Unknown]
  - Respiratory tract infection [Unknown]

NARRATIVE: CASE EVENT DATE: 20151222
